FAERS Safety Report 4960324-6 (Version None)
Quarter: 2006Q1

REPORT INFORMATION
  Report Type: 
  Country: None (occurrence: None)
  Receive Date: 20060328
  Receipt Date: 20060323
  Transmission Date: 20060701
  Serious: Yes (Hospitalization, Other)
  Sender: FDA-Public Use
  Company Number: HQWYE481223MAR06

PATIENT
  Sex: Female

DRUGS (1)
  1. CEFIXIME CHEWABLE [Suspect]
     Indication: URINARY TRACT INFECTION
     Dosage: ORAL
     Route: 048
     Dates: start: 20050603, end: 20050607

REACTIONS (6)
  - ANGIONEUROTIC OEDEMA [None]
  - CLOSTRIDIUM COLITIS [None]
  - COLONOSCOPY ABNORMAL [None]
  - GASTROINTESTINAL DISORDER [None]
  - SUFFOCATION FEELING [None]
  - WEIGHT DECREASED [None]
